FAERS Safety Report 6220386-5 (Version None)
Quarter: 2009Q2

REPORT INFORMATION
  Report Type: 
  Country: None (occurrence: None)
  Receive Date: 20090610
  Receipt Date: 20090601
  Transmission Date: 20091009
  Serious: Yes (Hospitalization)
  Sender: FDA-Public Use
  Company Number: AT-TEVA-196789ISR

PATIENT
  Sex: Female
  Weight: 59.9 kg

DRUGS (7)
  1. PACLITAXEL [Suspect]
     Indication: NON-SMALL CELL LUNG CANCER
     Route: 042
  2. CARBOPLATIN [Suspect]
     Indication: NON-SMALL CELL LUNG CANCER
     Route: 042
  3. CP-751,871(STUDY DRUG) [Suspect]
     Indication: NON-SMALL CELL LUNG CANCER
     Route: 042
  4. FUROSEMIDE [Concomitant]
     Dates: start: 20090331, end: 20090501
  5. TRAMADOL HYDROCHLORIDE [Concomitant]
     Dates: start: 20090421
  6. PANTOPRAZOLE SODIUM [Concomitant]
     Dates: start: 20090421
  7. GRANISETRON HCL [Concomitant]
     Dates: start: 20090331, end: 20090501

REACTIONS (1)
  - PANCYTOPENIA [None]
